FAERS Safety Report 9100591 (Version 5)
Quarter: 2013Q3

REPORT INFORMATION
  Report Type: Spontaneous
  Country: GB (occurrence: GB)
  Receive Date: 20130215
  Receipt Date: 20130708
  Transmission Date: 20140515
  Serious: Yes (Disabling, Congenital Anomaly)
  Sender: FDA-Public Use
  Company Number: GB-JNJFOC-20130200411

PATIENT
  Sex: Female

DRUGS (11)
  1. HALOPERIDOL [Suspect]
     Indication: MATERNAL EXPOSURE BEFORE PREGNANCY
     Route: 064
  2. DROLEPTAN [Suspect]
     Indication: MATERNAL EXPOSURE BEFORE PREGNANCY
     Route: 064
  3. DEPIXOL [Suspect]
     Indication: MATERNAL EXPOSURE BEFORE PREGNANCY
     Route: 050
  4. VALIUM [Suspect]
     Indication: MATERNAL EXPOSURE BEFORE PREGNANCY
     Route: 064
  5. SPARINE [Suspect]
     Indication: MATERNAL EXPOSURE BEFORE PREGNANCY
     Route: 050
  6. DISIPAL [Suspect]
     Indication: MATERNAL EXPOSURE BEFORE PREGNANCY
     Route: 050
  7. ISTIN [Suspect]
     Indication: MATERNAL EXPOSURE BEFORE PREGNANCY
     Route: 050
  8. KEMADRIN [Suspect]
     Indication: MATERNAL EXPOSURE BEFORE PREGNANCY
     Route: 050
  9. NORMAXIN [Suspect]
     Indication: MATERNAL EXPOSURE BEFORE PREGNANCY
     Route: 050
  10. RELACTON-C [Suspect]
     Indication: MATERNAL EXPOSURE BEFORE PREGNANCY
     Route: 050
  11. SURMONTIL [Suspect]
     Indication: MATERNAL EXPOSURE BEFORE PREGNANCY
     Route: 050

REACTIONS (2)
  - Pierre Robin syndrome [Unknown]
  - Maternal exposure before pregnancy [Unknown]
